FAERS Safety Report 14564069 (Version 1)
Quarter: 2018Q1

REPORT INFORMATION
  Report Type: Spontaneous
  Country: US (occurrence: US)
  Receive Date: 20180222
  Receipt Date: 20180222
  Transmission Date: 20180509
  Serious: Yes (Life-Threatening)
  Sender: FDA-Public Use
  Company Number: US-PFIZER INC-2018073943

PATIENT
  Age: 35 Year
  Sex: Female
  Weight: 113 kg

DRUGS (1)
  1. IBRANCE [Suspect]
     Active Substance: PALBOCICLIB
     Indication: OVARIAN GERM CELL TERATOMA BENIGN
     Dosage: UNK

REACTIONS (2)
  - Product use in unapproved indication [Unknown]
  - Apparent death [Unknown]
